FAERS Safety Report 10954420 (Version 1)
Quarter: 2015Q1

REPORT INFORMATION
  Report Type: Report from Study
  Country: GB (occurrence: GB)
  Receive Date: 20150325
  Receipt Date: 20150325
  Transmission Date: 20150721
  Serious: Yes (Death, Other)
  Sender: FDA-Public Use
  Company Number: GB-CELGENE-GBR-2015033786

PATIENT
  Age: 88 Year

DRUGS (1)
  1. AZACITIDINE. [Suspect]
     Active Substance: AZACITIDINE
     Indication: MYELODYSPLASTIC SYNDROME
     Route: 065
     Dates: start: 201404, end: 201408

REACTIONS (6)
  - Injection site reaction [Unknown]
  - Death [Fatal]
  - No therapeutic response [Unknown]
  - Renal impairment [Unknown]
  - Neutropenia [Unknown]
  - Constipation [Unknown]
